FAERS Safety Report 15181865 (Version 1)
Quarter: 2018Q3

REPORT INFORMATION
  Report Type: Report from Study
  Country: None (occurrence: GB)
  Receive Date: 20180723
  Receipt Date: 20180723
  Transmission Date: 20181010
  Serious: Yes (Life-Threatening, Hospitalization, Other)
  Sender: FDA-Public Use
  Company Number: GB-ABBVIE-18K-167-2426555-00

PATIENT
  Age: 56 Year
  Sex: Female

DRUGS (1)
  1. HUMIRA [Suspect]
     Active Substance: ADALIMUMAB
     Indication: RHEUMATOID ARTHRITIS
     Route: 058
     Dates: start: 20161002, end: 20180315

REACTIONS (8)
  - Intestinal ischaemia [Recovered/Resolved]
  - Vascular operation [Unknown]
  - Hepatic ischaemia [Recovered/Resolved]
  - Procedural complication [Recovered/Resolved]
  - Acute kidney injury [Recovered/Resolved]
  - Rales [Recovered/Resolved]
  - Pyrexia [Recovered/Resolved]
  - Haemoglobin decreased [Unknown]

NARRATIVE: CASE EVENT DATE: 2018
